FAERS Safety Report 18599976 (Version 4)
Quarter: 2021Q1

REPORT INFORMATION
  Report Type: Other
  Country: US (occurrence: US)
  Receive Date: 20201210
  Receipt Date: 20210202
  Transmission Date: 20210419
  Serious: No
  Sender: FDA-Public Use
  Company Number: US-ROCHE-2730311

PATIENT
  Age: 48 Year
  Sex: Female
  Weight: 54.48 kg

DRUGS (1)
  1. OCREVUS [Suspect]
     Active Substance: OCRELIZUMAB
     Indication: PRIMARY PROGRESSIVE MULTIPLE SCLEROSIS
     Route: 042
     Dates: start: 20191115

REACTIONS (7)
  - Muscle spasticity [Not Recovered/Not Resolved]
  - Fatigue [Not Recovered/Not Resolved]
  - Conjunctivitis [Not Recovered/Not Resolved]
  - Headache [Unknown]
  - COVID-19 [Recovered/Resolved]
  - Fatigue [Unknown]
  - Muscle disorder [Not Recovered/Not Resolved]

NARRATIVE: CASE EVENT DATE: 20201130
